FAERS Safety Report 6795236-9 (Version None)
Quarter: 2010Q2

REPORT INFORMATION
  Report Type: 
  Country: None (occurrence: None)
  Receive Date: 20100625
  Receipt Date: 20100616
  Transmission Date: 20101027
  Serious: Yes (Hospitalization)
  Sender: FDA-Public Use
  Company Number: FI-ASTRAZENECA-2010SE27384

PATIENT
  Age: 52 Year
  Sex: Female

DRUGS (4)
  1. FASLODEX [Suspect]
     Indication: BREAST CANCER METASTATIC
     Route: 030
     Dates: start: 20100504
  2. FASLODEX [Suspect]
     Dosage: HALF OF THE INJECTION WAS GIVEN
     Route: 030
     Dates: start: 20100611, end: 20100611
  3. BONDRONAT [Concomitant]
  4. VERPAMIL [Concomitant]

REACTIONS (3)
  - BLOOD PRESSURE INCREASED [None]
  - DYSPNOEA [None]
  - HYPERSENSITIVITY [None]
